FAERS Safety Report 13716782 (Version 1)
Quarter: 2017Q3

REPORT INFORMATION
  Report Type: Spontaneous
  Country: US (occurrence: US)
  Receive Date: 20170705
  Receipt Date: 20170705
  Transmission Date: 20171127
  Serious: Yes (Other)
  Sender: FDA-Public Use
  Company Number: US-TEVA-767904USA

PATIENT
  Sex: Female

DRUGS (1)
  1. BUPROPION EXTENDED RELEASE XL [Suspect]
     Active Substance: BUPROPION
     Indication: SMOKING CESSATION THERAPY
     Dosage: TWO TABLETS FOR TEN DAYS THEN ONE TABLET FOR A TOTAL OF TWO WEEKS
     Route: 065
     Dates: start: 20170114

REACTIONS (5)
  - Hyperhidrosis [Unknown]
  - Palpitations [Unknown]
  - Myocardial infarction [Unknown]
  - Tremor [Unknown]
  - Hypertension [Unknown]

NARRATIVE: CASE EVENT DATE: 20170114
